FAERS Safety Report 17646300 (Version 4)
Quarter: 2022Q4

REPORT INFORMATION
  Report Type: Spontaneous
  Country: US (occurrence: US)
  Receive Date: 20200408
  Receipt Date: 20221117
  Transmission Date: 20230113
  Serious: Yes (Other)
  Sender: FDA-Public Use
  Company Number: US-SA-2020SA088144

PATIENT
  Age: 59 Year
  Sex: Female

DRUGS (5)
  1. DUPIXENT [Suspect]
     Active Substance: DUPILUMAB
     Indication: Cutaneous T-cell lymphoma stage I
     Dosage: 600 MG LOADING DOSE, 1X
  2. DUPIXENT [Suspect]
     Active Substance: DUPILUMAB
     Indication: Dermatitis atopic
     Dosage: 300 MG, QOW
     Route: 058
  3. DUPIXENT [Suspect]
     Active Substance: DUPILUMAB
     Dosage: 300MG EVERY 3.5 WEEKS
  4. GABAPENTIN [Concomitant]
     Active Substance: GABAPENTIN
     Route: 048
  5. TACROLIMUS [Concomitant]
     Active Substance: TACROLIMUS
     Route: 061

REACTIONS (8)
  - Cutaneous T-cell lymphoma stage I [Recovering/Resolving]
  - Condition aggravated [Recovering/Resolving]
  - Unintentional use for unapproved indication [Recovering/Resolving]
  - Skin plaque [Recovering/Resolving]
  - Night sweats [Recovering/Resolving]
  - Fatigue [Recovering/Resolving]
  - Lymphadenopathy [Recovering/Resolving]
  - Weight decreased [Recovering/Resolving]
